FAERS Safety Report 6050937-5 (Version None)
Quarter: 2009Q1

REPORT INFORMATION
  Report Type: 
  Country: None (occurrence: None)
  Receive Date: 20090126
  Receipt Date: 20080806
  Transmission Date: 20090719
  Serious: No
  Sender: FDA-Public Use
  Company Number: US-TYCO HEALTHCARE/MALLINCKRODT-T200801262

PATIENT

DRUGS (5)
  1. OPTIRAY 300 [Suspect]
     Indication: COMPUTERISED TOMOGRAM
     Dosage: 100 ML, SINGLE
     Route: 042
     Dates: start: 20080805, end: 20080805
  2. CONCERTA [Concomitant]
     Dosage: 108 MG, QD
  3. RITALIN [Concomitant]
     Dosage: 5 MG, QD
  4. MINOCYCLINE HCL [Concomitant]
     Dosage: UNK, QD
     Route: 048
  5. ALBUTEROL [Concomitant]
     Indication: COUGH
     Dosage: 2 PUFFS Q4HR PRN

REACTIONS (1)
  - INJECTION SITE PAIN [None]
